FAERS Safety Report 6590306-2 (Version None)
Quarter: 2010Q1

REPORT INFORMATION
  Report Type: 
  Country: None (occurrence: None)
  Receive Date: 20100219
  Receipt Date: 20100208
  Transmission Date: 20100710
  Serious: Yes (Hospitalization, Other)
  Sender: FDA-Public Use
  Company Number: CHPA2009US22809

PATIENT
  Age: 85 Year
  Sex: Female
  Weight: 53.968 kg

DRUGS (9)
  1. BENEFIBER W/ WHEAT DEXTRIN (NCH) [Suspect]
     Indication: CONSTIPATION
     Dosage: 9 TSP, QD
     Route: 048
  2. NAMENDA [Concomitant]
     Indication: MEMORY IMPAIRMENT
     Dosage: UNK, BID
     Route: 048
  3. AGGRENOX [Concomitant]
     Indication: ANTICOAGULANT THERAPY
     Dosage: UNK, BID
     Route: 048
  4. PROCARDIA [Concomitant]
     Indication: HYPERTENSION
     Dosage: UNK, QD
     Route: 048
  5. AVAPRO [Concomitant]
     Dosage: UNK, QD
     Route: 048
  6. ZOCOR [Concomitant]
     Indication: URINARY INCONTINENCE
     Dosage: UNK, QD
     Route: 048
  7. FLOMAX [Concomitant]
     Dosage: UNK, QD
  8. GALANTAMINE HYDROBROMIDE [Concomitant]
     Indication: MEMORY IMPAIRMENT
     Dosage: UNK, QD
     Route: 048
  9. VITAMINS NOS [Concomitant]

REACTIONS (15)
  - CAROTID ARTERY OCCLUSION [None]
  - CEREBROVASCULAR ACCIDENT [None]
  - DEMENTIA [None]
  - DEMENTIA ALZHEIMER'S TYPE [None]
  - DYSGRAPHIA [None]
  - DYSPHAGIA [None]
  - FALL [None]
  - FOAMING AT MOUTH [None]
  - HEMIPARESIS [None]
  - MONOPLEGIA [None]
  - OFF LABEL USE [None]
  - OVERDOSE [None]
  - SALIVARY HYPERSECRETION [None]
  - TRANSIENT ISCHAEMIC ATTACK [None]
  - VISUAL IMPAIRMENT [None]
